FAERS Safety Report 6170318-3 (Version None)
Quarter: 2009Q2

REPORT INFORMATION
  Report Type: 
  Country: None (occurrence: None)
  Receive Date: 20090428
  Receipt Date: 20090422
  Transmission Date: 20091009
  Serious: Yes (Hospitalization)
  Sender: FDA-Public Use
  Company Number: FR-PFIZER INC-2008042231

PATIENT

DRUGS (12)
  1. DEPO-MEDROL [Suspect]
     Indication: NON-HODGKIN'S LYMPHOMA
     Route: 037
     Dates: start: 20080306, end: 20080306
  2. CYTARABINE [Suspect]
     Indication: NON-HODGKIN'S LYMPHOMA
     Route: 037
     Dates: start: 20080306, end: 20080306
  3. DOXORUBICIN HYDROCHLORIDE [Suspect]
     Indication: NON-HODGKIN'S LYMPHOMA
     Route: 037
     Dates: start: 20080306, end: 20080306
  4. LEDERTREXATE [Suspect]
     Indication: NON-HODGKIN'S LYMPHOMA
     Route: 037
     Dates: start: 20080306, end: 20080306
  5. NOMEGESTROL [Concomitant]
  6. PEGFILGRASTIM [Concomitant]
  7. TRAMADOL HCL [Concomitant]
  8. PANTOPRAZOLE SODIUM [Concomitant]
  9. RITUXIMAB [Concomitant]
     Indication: NON-HODGKIN'S LYMPHOMA
     Route: 042
     Dates: start: 20080306, end: 20080306
  10. ENDOXAN [Concomitant]
     Indication: NON-HODGKIN'S LYMPHOMA
     Route: 042
     Dates: start: 20080306, end: 20080306
  11. ONCOVIN [Concomitant]
     Indication: NON-HODGKIN'S LYMPHOMA
     Route: 042
     Dates: start: 20080306, end: 20080306
  12. SOLUPRED [Concomitant]
     Indication: NON-HODGKIN'S LYMPHOMA
     Route: 048
     Dates: start: 20080306, end: 20080306

REACTIONS (1)
  - INTERSTITIAL LUNG DISEASE [None]
